FAERS Safety Report 18058156 (Version 1)
Quarter: 2020Q3

REPORT INFORMATION
  Report Type: Spontaneous
  Country: JP (occurrence: JP)
  Receive Date: 20200723
  Receipt Date: 20200723
  Transmission Date: 20201103
  Serious: Yes (Other)
  Sender: FDA-Public Use
  Company Number: JP-AUROBINDO-AUR-APL-2020-036530

PATIENT
  Sex: Male

DRUGS (7)
  1. DEXAMETHASONE. [Suspect]
     Active Substance: DEXAMETHASONE
     Dosage: 20 MILLIGRAM, ONCE A DAY (ON DAYS 1, 8, 15 AND 22), AS MAINTENANCE THERAPY
     Route: 048
     Dates: start: 2018
  2. LENALIDOMIDE [Suspect]
     Active Substance: LENALIDOMIDE
     Indication: PLASMA CELL MYELOMA
     Dosage: 10 MILLIGRAM, ONCE A DAY (ON DAYS 121)
     Route: 065
     Dates: start: 2018
  3. MELPHALAN. [Suspect]
     Active Substance: MELPHALAN
     Indication: BONE MARROW CONDITIONING REGIMEN
  4. THALIDOMIDE [Suspect]
     Active Substance: THALIDOMIDE
     Indication: PLASMA CELL MYELOMA
     Dosage: 100 MILLIGRAM, ONCE A DAY (MAINTENANCE THERAPY)
     Route: 065
  5. MELPHALAN. [Suspect]
     Active Substance: MELPHALAN
     Indication: PLASMA CELL MYELOMA
     Dosage: 100 MILLIGRAM/SQ. METER, ONCE A DAY FOR 2 DAYS
     Route: 065
  6. BORTEZOMIB. [Suspect]
     Active Substance: BORTEZOMIB
     Indication: PLASMA CELL MYELOMA
     Dosage: 1.3 MILLIGRAM/SQ. METER (ON DAYS 1, 4, 8 AND 11)
     Route: 042
     Dates: start: 2014
  7. DEXAMETHASONE. [Suspect]
     Active Substance: DEXAMETHASONE
     Indication: PLASMA CELL MYELOMA
     Dosage: 20 MILLIGRAM, ONCE A DAY (ON DAYS 1, 2, 4, 5, 9, 11 AND 12)
     Route: 048

REACTIONS (8)
  - Myasthenia gravis [Unknown]
  - Muscular weakness [Recovered/Resolved]
  - Upper respiratory tract infection [Unknown]
  - Eyelid ptosis [Recovered/Resolved]
  - Toxicity to various agents [Unknown]
  - Diplopia [Recovered/Resolved]
  - Peripheral sensory neuropathy [Unknown]
  - Fatigue [Recovered/Resolved]
